FAERS Safety Report 8521898-1 (Version None)
Quarter: 2012Q3

REPORT INFORMATION
  Report Type: 
  Country: None (occurrence: None)
  Receive Date: 20120719
  Receipt Date: 20120716
  Transmission Date: 20120928
  Serious: No
  Sender: FDA-Public Use
  Company Number: US-TEVA-348788USA

PATIENT
  Sex: Female

DRUGS (2)
  1. ENJUVIA [Suspect]
     Indication: MENOPAUSE
  2. BETA BLOCKERS [Concomitant]

REACTIONS (1)
  - ALOPECIA [None]
